FAERS Safety Report 13859548 (Version 1)
Quarter: 2017Q3

REPORT INFORMATION
  Report Type: Spontaneous
  Country: US (occurrence: US)
  Receive Date: 20170811
  Receipt Date: 20170811
  Transmission Date: 20171127
  Serious: No
  Sender: FDA-Public Use
  Company Number: US-PERRIGO-17US024361

PATIENT
  Age: 56 Year
  Sex: Male
  Weight: 99.77 kg

DRUGS (4)
  1. LORATADINE. [Suspect]
     Active Substance: LORATADINE
     Indication: OROPHARYNGEAL PAIN
  2. LORATADINE. [Suspect]
     Active Substance: LORATADINE
     Indication: ALLERGY TO ARTHROPOD STING
     Dosage: 10 MG, SINGLE
     Route: 048
     Dates: start: 20170608, end: 20170608
  3. LORATADINE. [Suspect]
     Active Substance: LORATADINE
     Indication: NASAL CONGESTION
     Dosage: 3/4 TABLET, SINGLE
     Route: 048
     Dates: start: 20170609, end: 20170609
  4. LORATADINE. [Suspect]
     Active Substance: LORATADINE
     Indication: LACRIMATION INCREASED
     Dosage: 10 MG, SINGLE
     Route: 048
     Dates: start: 20170612, end: 20170612

REACTIONS (4)
  - Drug ineffective for unapproved indication [Unknown]
  - Feeling abnormal [Recovering/Resolving]
  - Wrong technique in product usage process [Recovered/Resolved]
  - Dizziness [Recovering/Resolving]

NARRATIVE: CASE EVENT DATE: 20170608
